FAERS Safety Report 12720568 (Version 3)
Quarter: 2017Q1

REPORT INFORMATION
  Report Type: Spontaneous
  Country: DE (occurrence: DE)
  Receive Date: 20160907
  Receipt Date: 20170103
  Transmission Date: 20170428
  Serious: Yes (Other)
  Sender: FDA-Public Use
  Company Number: DE-BAYER-2016-172103

PATIENT
  Age: 57 Year
  Sex: Male
  Weight: 84 kg

DRUGS (7)
  1. TRENANTONE [Concomitant]
     Active Substance: LEUPROLIDE ACETATE
  2. XOFIGO [Suspect]
     Active Substance: RADIUM RA-223 DICHLORIDE
     Indication: PROSTATE CANCER METASTATIC
     Dosage: (4.165 -4.256 KBQ)
     Route: 042
     Dates: start: 20160519, end: 20160519
  3. XOFIGO [Suspect]
     Active Substance: RADIUM RA-223 DICHLORIDE
     Indication: PROSTATE CANCER METASTATIC
     Dosage: (4.165 -4.256 KBQ)
     Route: 042
     Dates: start: 20160811, end: 20160811
  4. IBUPROFEN. [Concomitant]
     Active Substance: IBUPROFEN
  5. XOFIGO [Suspect]
     Active Substance: RADIUM RA-223 DICHLORIDE
     Indication: PROSTATE CANCER METASTATIC
     Dosage: (4.165 -4.256 KBQ)
     Route: 042
     Dates: start: 20160714, end: 20160714
  6. XOFIGO [Suspect]
     Active Substance: RADIUM RA-223 DICHLORIDE
     Indication: PROSTATE CANCER METASTATIC
     Dosage: (4.165 -4.256 KBQ)
     Route: 042
     Dates: start: 20160616, end: 20160616
  7. BISPHOSPHONATES [Concomitant]
     Active Substance: UNSPECIFIED INGREDIENT

REACTIONS (3)
  - Intervertebral disc operation [Unknown]
  - Platelet count decreased [Unknown]
  - Haemoglobin decreased [None]

NARRATIVE: CASE EVENT DATE: 201608
